FAERS Safety Report 5498712-4 (Version None)
Quarter: 2007Q4

REPORT INFORMATION
  Report Type: 
  Country: None (occurrence: None)
  Receive Date: 20071026
  Receipt Date: 20070709
  Transmission Date: 20080405
  Serious: No
  Sender: FDA-Public Use
  Company Number: A0662497A

PATIENT
  Age: 77 Year
  Sex: Male

DRUGS (2)
  1. ADVAIR DISKUS 100/50 [Suspect]
     Dosage: 1PUFF AS REQUIRED
     Route: 055
     Dates: start: 20061101
  2. VICKS VAPOSTEAM LIQUID MEDICATION [Concomitant]

REACTIONS (3)
  - COUGH [None]
  - INCREASED UPPER AIRWAY SECRETION [None]
  - SPUTUM ABNORMAL [None]
